FAERS Safety Report 7945953-X (Version None)
Quarter: 2011Q4

REPORT INFORMATION
  Report Type: 
  Country: None (occurrence: None)
  Receive Date: 20111129
  Receipt Date: 20111126
  Transmission Date: 20120403
  Serious: Yes (Death)
  Sender: FDA-Public Use
  Company Number: PHHY2011MX103790

PATIENT
  Sex: Male

DRUGS (1)
  1. FORADIL [Suspect]
     Indication: ASTHMA
     Dosage: 12 UG, QD
     Dates: start: 20110724

REACTIONS (1)
  - INFARCTION [None]
